FAERS Safety Report 8596429-0 (Version None)
Quarter: 2012Q3

REPORT INFORMATION
  Report Type: 
  Country: None (occurrence: None)
  Receive Date: 20120815
  Receipt Date: 20120807
  Transmission Date: 20120928
  Serious: Yes (Hospitalization)
  Sender: FDA-Public Use
  Company Number: US-PURDUE-USA-2012-0088395

PATIENT
  Sex: Male
  Weight: 144.22 kg

DRUGS (8)
  1. MS CONTIN [Concomitant]
     Indication: PAIN
     Dosage: 60 MG, TID PRN
  2. METOPROLOL                         /00376902/ [Concomitant]
     Dosage: 25 MG, UNK
  3. LISINOPRIL [Concomitant]
     Dosage: 40 MG, DAILY
  4. ZOLOFT [Concomitant]
     Dosage: 100 MG, DAILY
  5. BUTRANS [Suspect]
     Indication: PAIN
     Dosage: 10 MCG/HR, UNK
     Route: 062
     Dates: start: 20120424, end: 20120519
  6. NSAID'S [Concomitant]
  7. FLEXERIL [Concomitant]
     Dosage: 10 MG, TID PRN
  8. MEDROL [Concomitant]

REACTIONS (1)
  - ROAD TRAFFIC ACCIDENT [None]
